FAERS Safety Report 10552278 (Version 1)
Quarter: 2014Q4

REPORT INFORMATION
  Report Type: Spontaneous
  Country: DK (occurrence: DK)
  Receive Date: 20141029
  Receipt Date: 20141029
  Transmission Date: 20150529
  Serious: Yes (Other)
  Sender: FDA-Public Use
  Company Number: DK-ACTAVIS-2014-22810

PATIENT
  Age: 39 Year
  Sex: Female

DRUGS (3)
  1. ZOLPIDEM [Suspect]
     Active Substance: ZOLPIDEM\ZOLPIDEM TARTRATE
     Indication: INSOMNIA
     Dosage: 10 MG, DAILY
     Route: 065
     Dates: start: 20140604
  2. LAMOTRIGINE (UNKNOWN) [Concomitant]
     Active Substance: LAMOTRIGINE
     Indication: BIPOLAR DISORDER
     Dosage: 250 MG, BID
     Route: 065
  3. RISPERIDONE (UNKNOWN) [Concomitant]
     Active Substance: RISPERIDONE
     Indication: BIPOLAR I DISORDER
     Dosage: 0.25 MG, UNK
     Route: 065

REACTIONS (7)
  - Dependence [Unknown]
  - Intentional product use issue [Unknown]
  - Fatigue [Unknown]
  - Drug ineffective [Unknown]
  - Weight decreased [Unknown]
  - Hypersomnia [Unknown]
  - Decreased appetite [Unknown]
